FAERS Safety Report 9669936 (Version 1)
Quarter: 2013Q4

REPORT INFORMATION
  Report Type: Spontaneous
  Country: US (occurrence: None)
  Receive Date: 20131104
  Receipt Date: 20131104
  Transmission Date: 20140711
  Serious: Yes (Other)
  Sender: FDA-Public Use
  Company Number: 2013P1020474

PATIENT
  Age: 21 Year
  Sex: Female

DRUGS (1)
  1. DOXYCYCLINE [Suspect]
     Indication: UPPER RESPIRATORY TRACT INFECTION
     Dosage: 10 DAYS.

REACTIONS (1)
  - Pancreatitis acute [None]
